FAERS Safety Report 24681395 (Version 1)
Quarter: 2024Q4

REPORT INFORMATION
  Report Type: Report from Study
  Country: BR (occurrence: BR)
  Receive Date: 20241129
  Receipt Date: 20241129
  Transmission Date: 20250115
  Serious: Yes (Hospitalization, Other)
  Sender: ABBVIE
  Company Number: BR-ABBVIE-6018495

PATIENT
  Age: 27 Year
  Sex: Female
  Weight: 108 kg

DRUGS (1)
  1. ADALIMUMAB [Suspect]
     Active Substance: ADALIMUMAB
     Indication: Psoriasis
     Route: 058

REACTIONS (12)
  - Intentional self-injury [Unknown]
  - Skin odour abnormal [Unknown]
  - Panic disorder [Unknown]
  - Miosis [Unknown]
  - Poisoning deliberate [Unknown]
  - Obesity [Unknown]
  - Skin exfoliation [Unknown]
  - Depression [Unknown]
  - Diabetes mellitus [Unknown]
  - Bipolar disorder [Unknown]
  - Suicide attempt [Unknown]
  - Suicide attempt [Unknown]

NARRATIVE: CASE EVENT DATE: 20240101
